FAERS Safety Report 7893292-8 (Version None)
Quarter: 2011Q4

REPORT INFORMATION
  Report Type: 
  Country: None (occurrence: None)
  Receive Date: 20111104
  Receipt Date: 20111102
  Transmission Date: 20120403
  Serious: Yes (Other)
  Sender: FDA-Public Use
  Company Number: US-PFIZER INC-2011268351

PATIENT
  Sex: Male

DRUGS (3)
  1. PREDNISONE [Suspect]
     Dosage: UNK
  2. AVONEX [Suspect]
     Dosage: Q/SUNDAYS
  3. GABAPENTIN [Suspect]
     Dosage: UNK

REACTIONS (5)
  - EYE MOVEMENT DISORDER [None]
  - MUSCULOSKELETAL DISCOMFORT [None]
  - BLOOD PRESSURE INCREASED [None]
  - DRUG INEFFECTIVE [None]
  - VISUAL IMPAIRMENT [None]
